FAERS Safety Report 6306711-5 (Version None)
Quarter: 2009Q3

REPORT INFORMATION
  Report Type: 
  Country: None (occurrence: None)
  Receive Date: 20090812
  Receipt Date: 20090521
  Transmission Date: 20100115
  Serious: No
  Sender: FDA-Public Use
  Company Number: A0785569A

PATIENT
  Age: 73 Year
  Sex: Female

DRUGS (5)
  1. VERAMYST [Suspect]
     Indication: ALLERGIC SINUSITIS
     Dosage: 2SPR PER DAY
     Route: 045
     Dates: start: 20090518
  2. LIPITOR [Concomitant]
  3. TRAVATAN [Concomitant]
  4. LEVOXYL [Concomitant]
  5. FUROSEMIDE [Concomitant]

REACTIONS (4)
  - DECREASED APPETITE [None]
  - FEELING ABNORMAL [None]
  - NAUSEA [None]
  - SLUGGISHNESS [None]
